FAERS Safety Report 4860569-X (Version None)
Quarter: 2005Q4

REPORT INFORMATION
  Report Type: 
  Country: None (occurrence: None)
  Receive Date: 20051219
  Receipt Date: 20030605
  Transmission Date: 20060501
  Serious: Yes (Hospitalization, Disabling, Other)
  Sender: FDA-Public Use
  Company Number: US-MERCK-0306USA00625

PATIENT
  Age: 46 Year
  Sex: Male
  Weight: 79 kg

DRUGS (10)
  1. VIOXX [Suspect]
     Indication: TOOTHACHE
     Route: 048
     Dates: start: 20010423
  2. VIOXX [Suspect]
     Route: 048
     Dates: start: 20010302, end: 20010524
  3. XANAX [Concomitant]
     Route: 065
  4. VICODIN ES [Concomitant]
     Route: 065
  5. ULTRAM [Suspect]
     Route: 065
  6. AMITRIPTYLINE HYDROCHLORIDE [Concomitant]
     Route: 065
  7. NEURONTIN [Concomitant]
     Route: 065
  8. GLUCOPHAGE [Concomitant]
     Route: 065
  9. GLUCOTROL [Concomitant]
     Route: 065
  10. ASPIRIN [Concomitant]
     Route: 065

REACTIONS (9)
  - ANGINA PECTORIS [None]
  - BLOOD PRESSURE INCREASED [None]
  - CARPAL TUNNEL SYNDROME [None]
  - CEREBROVASCULAR ACCIDENT [None]
  - CHEST PAIN [None]
  - CONVULSION [None]
  - FACIAL PAIN [None]
  - HYPOAESTHESIA [None]
  - ORAL PAIN [None]
